FAERS Safety Report 9412184 (Version 1)
Quarter: 2013Q3

REPORT INFORMATION
  Report Type: Spontaneous
  Country: US (occurrence: None)
  Receive Date: 20130719
  Receipt Date: 20130719
  Transmission Date: 20140515
  Serious: Yes (Life-Threatening, Hospitalization)
  Sender: FDA-Public Use
  Company Number: None

PATIENT
  Age: 76 Year
  Sex: Male
  Weight: 84 kg

DRUGS (17)
  1. CABAZOTAXE [Suspect]
     Route: 042
     Dates: start: 20120808
  2. OCTREOTIDE [Suspect]
     Route: 030
     Dates: start: 20120808
  3. HUMALOG [Concomitant]
  4. LANTUS [Concomitant]
  5. METOPROLOL [Concomitant]
  6. VYTORIN [Concomitant]
  7. BENICAR [Concomitant]
  8. PLAVIX [Concomitant]
  9. VICODIN [Concomitant]
  10. LUPRON [Concomitant]
  11. ALEVE [Concomitant]
  12. IRON [Concomitant]
  13. COMPAZINE [Concomitant]
  14. COLACE [Concomitant]
  15. SENNA [Concomitant]
  16. LACTULOSE [Concomitant]
  17. FENTANYL [Concomitant]

REACTIONS (26)
  - Incoherent [None]
  - Asthenia [None]
  - Febrile neutropenia [None]
  - Chills [None]
  - Nausea [None]
  - Vomiting [None]
  - Hypotension [None]
  - Anaemia [None]
  - Thrombocytopenia [None]
  - Ejection fraction decreased [None]
  - Odynophagia [None]
  - Oedema peripheral [None]
  - Oedema peripheral [None]
  - Scrotal oedema [None]
  - Pleural effusion [None]
  - Colitis [None]
  - Blood culture positive [None]
  - Escherichia test positive [None]
  - Streptococcus test positive [None]
  - Klebsiella test positive [None]
  - Septic shock [None]
  - Endocrine disorder [None]
  - Metabolic disorder [None]
  - Hypocalcaemia [None]
  - Blood phosphorus decreased [None]
  - Blood glucose increased [None]
